FAERS Safety Report 10196396 (Version 2)
Quarter: 2014Q2

REPORT INFORMATION
  Report Type: Spontaneous
  Country: GB (occurrence: GB)
  Receive Date: 20140527
  Receipt Date: 20140623
  Transmission Date: 20141212
  Serious: Yes (Life-Threatening, Disabling)
  Sender: FDA-Public Use
  Company Number: GB-JNJFOC-20140514682

PATIENT
  Age: 63 Year
  Sex: Female

DRUGS (8)
  1. XEPLION [Suspect]
     Indication: SCHIZOPHRENIA
     Route: 030
     Dates: start: 20111005
  2. AMITRIPTYLINE [Concomitant]
     Indication: ANALGESIC THERAPY
     Route: 048
  3. OMEPRAZOLE [Concomitant]
     Indication: ANALGESIC THERAPY
     Route: 048
  4. PREGABALIN [Concomitant]
     Indication: ANALGESIC THERAPY
     Route: 048
  5. DEXAMETASONE [Concomitant]
     Indication: STEROID THERAPY
     Route: 048
  6. HYOSCINE [Concomitant]
     Indication: SALIVARY HYPERSECRETION
     Route: 061
  7. MST CONTINUS [Concomitant]
     Indication: ANALGESIC THERAPY
     Route: 048
  8. ORAMORPH [Concomitant]
     Indication: ANALGESIC THERAPY
     Dosage: 10 MG OR 5 MG ONCE A DAY
     Route: 048

REACTIONS (3)
  - Breast cancer recurrent [Unknown]
  - Neoplasm malignant [Not Recovered/Not Resolved]
  - Metastatic neoplasm [Unknown]
